FAERS Safety Report 7224941-5 (Version None)
Quarter: 2011Q1

REPORT INFORMATION
  Report Type: 
  Country: None (occurrence: None)
  Receive Date: 20110103
  Receipt Date: 20101216
  Transmission Date: 20110831
  Serious: Yes (Other)
  Sender: FDA-Public Use
  Company Number: 1000015872

PATIENT
  Age: 42 Year
  Sex: Male

DRUGS (5)
  1. ESCITALOPRAM [Suspect]
     Indication: DEPRESSION
     Dosage: 15 MG (15 MG, 1 IN 1 D), ORAL; 20 MG (20 MG, 1 IN 1 D), ORAL
     Route: 048
     Dates: start: 20100817
  2. ESCITALOPRAM [Suspect]
     Indication: DEPRESSION
     Dosage: 15 MG (15 MG, 1 IN 1 D), ORAL; 20 MG (20 MG, 1 IN 1 D), ORAL
     Route: 048
     Dates: start: 20100501, end: 20100816
  3. ESCITALOPRAM [Suspect]
     Indication: DEPRESSION
     Dosage: 30 MG (30 MG, 1 IN 1 D), ORAL; 25 MG (25 MG, 1 IN 1 D), ORAL
     Route: 048
     Dates: start: 20010101, end: 20040101
  4. ESCITALOPRAM [Suspect]
     Indication: DEPRESSION
     Dosage: 30 MG (30 MG, 1 IN 1 D), ORAL; 25 MG (25 MG, 1 IN 1 D), ORAL
     Route: 048
     Dates: start: 20050101, end: 20100101
  5. ESCITALOPRAM [Suspect]
     Indication: DEPRESSION
     Dosage: 30 MG (30 MG, 1 IN 1 D), ORAL; 25 MG (25 MG, 1 IN 1 D), ORAL
     Route: 048
     Dates: start: 20100101, end: 20100101

REACTIONS (8)
  - SYNCOPE [None]
  - HYPOAESTHESIA [None]
  - INSOMNIA [None]
  - POLLAKIURIA [None]
  - DRUG WITHDRAWAL SYNDROME [None]
  - SPEECH DISORDER [None]
  - FATIGUE [None]
  - THYROID FUNCTION TEST ABNORMAL [None]
